FAERS Safety Report 7398972-9 (Version None)
Quarter: 2011Q2

REPORT INFORMATION
  Report Type: 
  Country: None (occurrence: None)
  Receive Date: 20110407
  Receipt Date: 20110329
  Transmission Date: 20111010
  Serious: No
  Sender: FDA-Public Use
  Company Number: US-PFIZER INC-2011069940

PATIENT
  Sex: Female

DRUGS (3)
  1. PROCARDIA [Suspect]
     Dosage: UNK
  2. AMLODIPINE BESYLATE [Suspect]
     Dosage: UNK
  3. LISINOPRIL [Suspect]
     Dosage: UNK

REACTIONS (7)
  - ABDOMINAL PAIN UPPER [None]
  - FEELING ABNORMAL [None]
  - ULCER [None]
  - CONSTIPATION [None]
  - TREMOR [None]
  - EATING DISORDER [None]
  - FATIGUE [None]
